FAERS Safety Report 4353606-2 (Version None)
Quarter: 2004Q2

REPORT INFORMATION
  Report Type: 
  Country: None (occurrence: None)
  Receive Date: 20040430
  Receipt Date: 20040420
  Transmission Date: 20050107
  Serious: Yes (Other)
  Sender: FDA-Public Use
  Company Number: 2004026961

PATIENT
  Age: 74 Year
  Sex: Female

DRUGS (2)
  1. NEURONTIN [Suspect]
     Indication: ILL-DEFINED DISORDER
     Dosage: 1200 MG DAILY, ORAL
     Route: 048
     Dates: start: 20040215
  2. DIAZEPAM [Concomitant]

REACTIONS (2)
  - DIZZINESS [None]
  - EYELID OEDEMA [None]
